FAERS Safety Report 11323753 (Version 1)
Quarter: 2015Q3

REPORT INFORMATION
  Report Type: Spontaneous
  Country: US (occurrence: None)
  Receive Date: 20150729
  Receipt Date: 20150729
  Transmission Date: 20151125
  Serious: No
  Sender: FDA-Public Use
  Company Number: None

PATIENT
  Age: 60 Year
  Sex: Female

DRUGS (1)
  1. IBRANCE [Suspect]
     Active Substance: PALBOCICLIB
     Indication: BREAST CANCER
     Dosage: DAILY FOR 21 DAYS ORAL
     Route: 048
     Dates: start: 20150707, end: 20150721

REACTIONS (2)
  - Platelet count decreased [None]
  - Rash [None]

NARRATIVE: CASE EVENT DATE: 20150721
